FAERS Safety Report 18462046 (Version 4)
Quarter: 2021Q1

REPORT INFORMATION
  Report Type: Report from Study
  Country: None (occurrence: BE)
  Receive Date: 20201104
  Receipt Date: 20210204
  Transmission Date: 20210419
  Serious: Yes (Hospitalization, Other)
  Sender: FDA-Public Use
  Company Number: BE-ABBVIE-19S-013-2609770-00

PATIENT
  Age: 75 Year
  Sex: Male
  Weight: 84 kg

DRUGS (24)
  1. DUODOPA [Suspect]
     Active Substance: CARBIDOPA\LEVODOPA
     Dosage: MD=9ML CD=3.6ML/HR DURING 16HRS  ED=1.5ML
     Route: 050
     Dates: start: 20181222, end: 20190115
  2. DUODOPA [Suspect]
     Active Substance: CARBIDOPA\LEVODOPA
     Dosage: MD=9ML, CD=2.4ML/HR DURING 16HRS, ED=2ML
     Route: 050
     Dates: start: 20191020, end: 20200108
  3. NOVORAPID [Concomitant]
     Active Substance: INSULIN ASPART
     Indication: PRODUCT USED FOR UNKNOWN INDICATION
     Dosage: UNIT DOSE: 12E
  4. PROLOPA 250 [Concomitant]
     Dosage: FORM STRENGTH: 200MG/50MG; UNIT DOSE: 1 TABLET; RESCUE MEDICATION (AFTER START OF DUODOPA)
  5. DUODOPA [Suspect]
     Active Substance: CARBIDOPA\LEVODOPA
     Dosage: MD= 9ML CD= 3.4ML/HR DURING 16HRS  ED= 2ML
     Route: 050
     Dates: start: 20190309, end: 20190503
  6. DUODOPA [Suspect]
     Active Substance: CARBIDOPA\LEVODOPA
     Dosage: MD=9ML CD=3ML/HR DURING 16HRS ED=2ML
     Route: 050
     Dates: start: 20190506, end: 20190508
  7. DUODOPA [Suspect]
     Active Substance: CARBIDOPA\LEVODOPA
     Dosage: MD=9ML, CD=2.7ML/HR DURING 16HRS, ED=2.5ML
     Route: 050
     Dates: start: 20200520, end: 20200824
  8. DUODOPA [Suspect]
     Active Substance: CARBIDOPA\LEVODOPA
     Dosage: MD=9ML, CD=2.4ML/HR DURING 16HRS, ED=2ML
     Route: 050
     Dates: start: 20200108, end: 202005
  9. NEBIVOLOL SANDOZ [Concomitant]
     Active Substance: NEBIVOLOL
     Indication: PRODUCT USED FOR UNKNOWN INDICATION
  10. PROLOPA 250 [Concomitant]
     Indication: PARKINSON^S DISEASE
     Dosage: FORM STRENGTH: 200MG/50MG (PRIOR TO DUODOPA)
     Route: 048
  11. DUODOPA [Suspect]
     Active Substance: CARBIDOPA\LEVODOPA
     Dosage: MD=9ML, CD=2.3ML/HR DURING 16HRS, ED= 2.5ML.
     Route: 050
     Dates: start: 20201126, end: 20210202
  12. DUODOPA [Suspect]
     Active Substance: CARBIDOPA\LEVODOPA
     Dosage: MD=9ML CD=3.2ML/HR DURING 16HRS ED=2ML
     Route: 050
     Dates: start: 20190503, end: 20190506
  13. DUODOPA [Suspect]
     Active Substance: CARBIDOPA\LEVODOPA
     Dosage: MD=9ML CD=2.8ML/HR DURING 16HRS ED=2ML
     Route: 050
     Dates: start: 20190508, end: 20190510
  14. DUODOPA [Suspect]
     Active Substance: CARBIDOPA\LEVODOPA
     Dosage: MD= 9.0 ML, CD= 2.2 ML/HR DURING 16HRS, ED= 2.5 ML
     Route: 050
     Dates: start: 20210202
  15. METFORMAX [Concomitant]
     Active Substance: METFORMIN HYDROCHLORIDE
     Indication: PRODUCT USED FOR UNKNOWN INDICATION
  16. DUODOPA [Suspect]
     Active Substance: CARBIDOPA\LEVODOPA
     Indication: PARKINSON^S DISEASE
     Dosage: MD=9ML CD=3.7ML/HR DURING 16HRS  ED=1.5ML
     Route: 050
     Dates: start: 20181210, end: 20181222
  17. DUODOPA [Suspect]
     Active Substance: CARBIDOPA\LEVODOPA
     Dosage: MD= 9ML?CD= 2.6ML/HR DURING 16HRS?ED= 2ML
     Route: 050
     Dates: start: 20190510, end: 20191020
  18. PRADAXA [Concomitant]
     Active Substance: DABIGATRAN ETEXILATE MESYLATE
     Indication: PRODUCT USED FOR UNKNOWN INDICATION
  19. ALDACTONE [Concomitant]
     Active Substance: SPIRONOLACTONE
     Indication: PRODUCT USED FOR UNKNOWN INDICATION
  20. FULTIUM D3 [Concomitant]
     Active Substance: CHOLECALCIFEROL
     Indication: PRODUCT USED FOR UNKNOWN INDICATION
  21. LANTUS [Concomitant]
     Active Substance: INSULIN GLARGINE
     Indication: PRODUCT USED FOR UNKNOWN INDICATION
     Dosage: UNIT DOSE: 18E
  22. DUODOPA [Suspect]
     Active Substance: CARBIDOPA\LEVODOPA
     Dosage: MD= 9ML CD= 3.6ML/HR DURING 16HRS ED= 2ML
     Route: 050
     Dates: start: 20190115, end: 20190309
  23. DUODOPA [Suspect]
     Active Substance: CARBIDOPA\LEVODOPA
     Dosage: MD=9ML, CD=2.5ML/HR DURING 16HRS, ED=2.5ML
     Route: 050
     Dates: start: 20200824, end: 20201126
  24. ZOCOR [Concomitant]
     Active Substance: SIMVASTATIN
     Indication: PRODUCT USED FOR UNKNOWN INDICATION

REACTIONS (14)
  - Contusion [Unknown]
  - Stoma site erythema [Unknown]
  - Urinary retention [Unknown]
  - Pain in extremity [Unknown]
  - Therapeutic product effect incomplete [Not Recovered/Not Resolved]
  - Hypotension [Not Recovered/Not Resolved]
  - Fall [Recovered/Resolved]
  - Underdose [Recovered/Resolved]
  - Muscle contractions involuntary [Not Recovered/Not Resolved]
  - Dyskinesia [Not Recovered/Not Resolved]
  - Dyskinesia [Recovered/Resolved]
  - Freezing phenomenon [Unknown]
  - Feeling abnormal [Unknown]
  - Blood glucose increased [Recovering/Resolving]

NARRATIVE: CASE EVENT DATE: 201812
